FAERS Safety Report 20184196 (Version 3)
Quarter: 2022Q1

REPORT INFORMATION
  Report Type: Report from Study
  Country: US (occurrence: US)
  Receive Date: 20211214
  Receipt Date: 20220208
  Transmission Date: 20220423
  Serious: Yes (Other)
  Sender: FDA-Public Use
  Company Number: US-SEATTLE GENETICS-2020SGN05170

PATIENT
  Age: 86 Year
  Sex: Female

DRUGS (2)
  1. TUCATINIB [Suspect]
     Active Substance: TUCATINIB
     Indication: Breast cancer female
     Dosage: 50 MG
     Route: 065
  2. TUCATINIB [Suspect]
     Active Substance: TUCATINIB
     Dosage: 150 MG
     Route: 065

REACTIONS (12)
  - Hallucination, visual [Unknown]
  - Hypoaesthesia [Unknown]
  - Condition aggravated [Unknown]
  - Confusional state [Unknown]
  - Vision blurred [Unknown]
  - Dizziness [Unknown]
  - Sciatica [Unknown]
  - Surgery [Unknown]
  - Lethargy [Unknown]
  - Headache [Unknown]
  - Fatigue [Unknown]
  - Dehydration [Unknown]

NARRATIVE: CASE EVENT DATE: 20211201
